FAERS Safety Report 8268974-9 (Version None)
Quarter: 2012Q2

REPORT INFORMATION
  Report Type: 
  Country: None (occurrence: None)
  Receive Date: 20120409
  Receipt Date: 20120405
  Transmission Date: 20120825
  Serious: Yes (Life-Threatening, Other)
  Sender: FDA-Public Use
  Company Number: PHEH2012US007440

PATIENT
  Sex: Female

DRUGS (1)
  1. RECLAST [Suspect]
     Dosage: UNK UKN, UNK
     Route: 042

REACTIONS (8)
  - BLINDNESS UNILATERAL [None]
  - MALAISE [None]
  - PYREXIA [None]
  - SUICIDAL BEHAVIOUR [None]
  - SKIN DISORDER [None]
  - PAIN [None]
  - GLAUCOMA [None]
  - BONE PAIN [None]
